FAERS Safety Report 10737068 (Version 6)
Quarter: 2015Q2

REPORT INFORMATION
  Report Type: Spontaneous
  Country: JP (occurrence: JP)
  Receive Date: 20150126
  Receipt Date: 20150424
  Transmission Date: 20150821
  Serious: Yes (Disabling, Other)
  Sender: FDA-Public Use
  Company Number: JP-ASTRAZENECA-2015SE03396

PATIENT
  Age: 14086 Day
  Sex: Female
  Weight: 50 kg

DRUGS (3)
  1. POPSCAINE [Suspect]
     Active Substance: LEVOBUPIVACAINE HYDROCHLORIDE
     Indication: POSTOPERATIVE ANALGESIA
     Route: 008
     Dates: start: 20141215, end: 20141216
  2. XYLOCAINE [Suspect]
     Active Substance: LIDOCAINE HYDROCHLORIDE
     Indication: ANAESTHESIA PROCEDURE
     Route: 065
     Dates: start: 20141215, end: 20141215
  3. MARCAINE [Suspect]
     Active Substance: BUPIVACAINE HYDROCHLORIDE
     Indication: SPINAL ANAESTHESIA
     Route: 029
     Dates: start: 20141215, end: 20141215

REACTIONS (7)
  - Anorectal disorder [Recovered/Resolved with Sequelae]
  - Cauda equina syndrome [Recovered/Resolved with Sequelae]
  - Sensory loss [Unknown]
  - Bladder disorder [Recovered/Resolved]
  - White blood cell count increased [Unknown]
  - Peripheral motor neuropathy [Unknown]
  - C-reactive protein increased [Unknown]

NARRATIVE: CASE EVENT DATE: 20141216
